FAERS Safety Report 7267277-9 (Version None)
Quarter: 2011Q1

REPORT INFORMATION
  Report Type: 
  Country: None (occurrence: None)
  Receive Date: 20110201
  Receipt Date: 20110121
  Transmission Date: 20110831
  Serious: Yes (Other)
  Sender: FDA-Public Use
  Company Number: US-BAYER-200834082NA

PATIENT
  Sex: Female

DRUGS (1)
  1. CLIMARA [Suspect]
     Indication: PRODUCT USED FOR UNKNOWN INDICATION
     Dosage: 0.05 MG/DAY ESTRADIOL CONTINUOUS RELEASE
     Route: 062

REACTIONS (3)
  - GENITAL HAEMORRHAGE [None]
  - SKIN REACTION [None]
  - PRODUCT QUALITY ISSUE [None]
